FAERS Safety Report 4931724-5 (Version None)
Quarter: 2006Q1

REPORT INFORMATION
  Report Type: 
  Country: None (occurrence: None)
  Receive Date: 20060106
  Receipt Date: 20051108
  Transmission Date: 20060701
  Serious: No
  Sender: FDA-Public Use
  Company Number: 200512505BWH

PATIENT
  Age: 53 Year
  Sex: Male

DRUGS (4)
  1. LEVITRA [Suspect]
     Indication: ANGINA PECTORIS
     Dosage: ORAL
     Route: 048
  2. LEVITRA [Suspect]
     Indication: ERECTILE DYSFUNCTION
     Dosage: ORAL
     Route: 048
  3. NITRATES [Concomitant]
  4. CALCIUM ANTAGONISTS [Concomitant]

REACTIONS (2)
  - ERECTILE DYSFUNCTION [None]
  - THERAPEUTIC RESPONSE UNEXPECTED [None]
